FAERS Safety Report 8384596-3 (Version None)
Quarter: 2012Q2

REPORT INFORMATION
  Report Type: 
  Country: None (occurrence: None)
  Receive Date: 20120524
  Receipt Date: 20120514
  Transmission Date: 20120825
  Serious: Yes (Other)
  Sender: FDA-Public Use
  Company Number: CA-JNJFOC-20120514960

PATIENT
  Sex: Female
  Weight: 61 kg

DRUGS (3)
  1. REMICADE [Suspect]
     Indication: COLITIS ULCERATIVE
     Dosage: 3 MORE INDUCTION DOSE
     Route: 042
     Dates: end: 20120404
  2. REMICADE [Suspect]
     Dosage: 4TH DOSE
     Route: 042
  3. REMICADE [Suspect]
     Dosage: 3 INDUCTION DOSES
     Route: 042
     Dates: start: 20111021

REACTIONS (2)
  - DRUG INEFFECTIVE [None]
  - SURGERY [None]
